FAERS Safety Report 8403080-1 (Version None)
Quarter: 2012Q2

REPORT INFORMATION
  Report Type: 
  Country: None (occurrence: None)
  Receive Date: 20120601
  Receipt Date: 20120522
  Transmission Date: 20120825
  Serious: Yes (Hospitalization, Other)
  Sender: FDA-Public Use
  Company Number: GB-BRISTOL-MYERS SQUIBB COMPANY-16625600

PATIENT
  Age: 32 Year
  Sex: Female

DRUGS (2)
  1. OMACOR [Suspect]
     Indication: BLOOD TRIGLYCERIDES INCREASED
     Route: 048
  2. METFORMIN HCL [Suspect]
     Indication: BLOOD TRIGLYCERIDES INCREASED
     Route: 048

REACTIONS (6)
  - OFF LABEL USE [None]
  - NORMAL NEWBORN [None]
  - PREMATURE LABOUR [None]
  - HYPERGLYCAEMIA [None]
  - PREGNANCY [None]
  - PANCREATITIS [None]
